FAERS Safety Report 9018926 (Version 4)
Quarter: 2013Q2

REPORT INFORMATION
  Report Type: Spontaneous
  Country: US (occurrence: US)
  Receive Date: 20130118
  Receipt Date: 20130606
  Transmission Date: 20140414
  Serious: Yes (Other)
  Sender: FDA-Public Use
  Company Number: CHPA2013US001072

PATIENT
  Sex: Female

DRUGS (1)
  1. VOLTAREN GEL [Suspect]
     Dosage: UNK, UNK
     Route: 061

REACTIONS (3)
  - Dacryostenosis acquired [Recovered/Resolved]
  - Visual impairment [Not Recovered/Not Resolved]
  - Drug dispensing error [Unknown]
